FAERS Safety Report 15867872 (Version 3)
Quarter: 2019Q1

REPORT INFORMATION
  Report Type: Spontaneous
  Country: JP (occurrence: JP)
  Receive Date: 20190125
  Receipt Date: 20190320
  Transmission Date: 20190417
  Serious: Yes (Hospitalization, Other)
  Sender: FDA-Public Use
  Company Number: JP-PFIZER INC-2019030104

PATIENT
  Age: 70 Year
  Sex: Male

DRUGS (1)
  1. AMIODARONE HCL [Suspect]
     Active Substance: AMIODARONE HYDROCHLORIDE
     Indication: ANGINA PECTORIS
     Dosage: 100 MG, DAILY (CUMULATIVE DOSE WAS APPROXIMATELY 85 G)
     Route: 048

REACTIONS (2)
  - Pulmonary toxicity [Recovering/Resolving]
  - Pulmonary alveolar haemorrhage [Recovering/Resolving]
